FAERS Safety Report 5157379-5 (Version None)
Quarter: 2006Q4

REPORT INFORMATION
  Report Type: 
  Country: None (occurrence: None)
  Receive Date: 20061127
  Receipt Date: 20060113
  Transmission Date: 20070319
  Serious: Yes (Other)
  Sender: FDA-Public Use
  Company Number: US-ROCHE-432335

PATIENT
  Age: 32 Year
  Sex: Female
  Weight: 71.7 kg

DRUGS (3)
  1. ACCUTANE [Suspect]
     Route: 048
     Dates: start: 20000119
  2. ACCUTANE [Suspect]
     Route: 048
     Dates: start: 20000218
  3. ACCUTANE [Suspect]
     Route: 048
     Dates: start: 20000324, end: 20000814

REACTIONS (10)
  - ALOPECIA [None]
  - ARTHRITIS [None]
  - BLOOD CHOLESTEROL INCREASED [None]
  - BLOOD TRIGLYCERIDES INCREASED [None]
  - COLITIS [None]
  - COLITIS ULCERATIVE [None]
  - DYSPEPSIA [None]
  - INFLAMMATORY BOWEL DISEASE [None]
  - RHEUMATOID ARTHRITIS [None]
  - SKIN NECROSIS [None]
